FAERS Safety Report 13345092 (Version 3)
Quarter: 2017Q2

REPORT INFORMATION
  Report Type: Spontaneous
  Country: US (occurrence: US)
  Receive Date: 20170317
  Receipt Date: 20170609
  Transmission Date: 20170830
  Serious: No
  Sender: FDA-Public Use
  Company Number: US-PFIZER INC-2017104552

PATIENT
  Sex: Female

DRUGS (1)
  1. XELJANZ XR [Suspect]
     Active Substance: TOFACITINIB CITRATE
     Dosage: 11 MG, UNK

REACTIONS (13)
  - Condition aggravated [Not Recovered/Not Resolved]
  - Sleep disorder [Unknown]
  - Synovitis [Unknown]
  - Back pain [Unknown]
  - Hand deformity [Unknown]
  - Arthralgia [Unknown]
  - Back disorder [Unknown]
  - Neuropathy peripheral [Not Recovered/Not Resolved]
  - Constipation [Unknown]
  - Depression [Unknown]
  - Hypocalcaemia [Unknown]
  - Pain in extremity [Unknown]
  - Spinal column stenosis [Unknown]
